FAERS Safety Report 5346876-5 (Version None)
Quarter: 2007Q2

REPORT INFORMATION
  Report Type: 
  Country: None (occurrence: None)
  Receive Date: 20070604
  Receipt Date: 20070521
  Transmission Date: 20071010
  Serious: Yes (Life-Threatening, Other)
  Sender: FDA-Public Use
  Company Number: 100#03#2007-01855

PATIENT
  Sex: Female

DRUGS (10)
  1. TRAMADOL HCL [Suspect]
     Indication: DRUG USE FOR UNKNOWN INDICATION
     Dosage: 100MG
     Route: 042
     Dates: start: 20070507, end: 20070507
  2. AMLODIPINE [Concomitant]
  3. CEFOTAXIME [Concomitant]
  4. CHLORPHENIRAMINE MALEATE [Concomitant]
  5. ENALAPRIL [Concomitant]
  6. LACTULOSE [Concomitant]
  7. MOVICOL                      (NULYTELY) [Concomitant]
  8. OMEPRAZOLE [Concomitant]
  9. ONDANSETRON [Concomitant]
  10. PARACETAMOL [Concomitant]

REACTIONS (2)
  - APNOEA [None]
  - GRAND MAL CONVULSION [None]
